FAERS Safety Report 7659355-7 (Version None)
Quarter: 2011Q3

REPORT INFORMATION
  Report Type: 
  Country: None (occurrence: None)
  Receive Date: 20110802
  Receipt Date: 20110725
  Transmission Date: 20111222
  Serious: Yes (Death)
  Sender: FDA-Public Use
  Company Number: AE-711-236

PATIENT
  Age: 25 Year
  Sex: Male

DRUGS (5)
  1. LIDODERM [Suspect]
  2. BENZODIAZEPINE [Suspect]
  3. FENTANYL [Suspect]
  4. OXYCODONE (ENDO REPORT # OXYC20110026) [Suspect]
  5. NORPROPOXYPHENE [Suspect]

REACTIONS (1)
  - MULTIPLE DRUG OVERDOSE [None]
